FAERS Safety Report 14021931 (Version 1)
Quarter: 2017Q3

REPORT INFORMATION
  Report Type: Spontaneous
  Country: US (occurrence: US)
  Receive Date: 20170928
  Receipt Date: 20170928
  Transmission Date: 20171128
  Serious: Yes (Hospitalization)
  Sender: FDA-Public Use
  Company Number: None

PATIENT
  Age: 84 Year
  Sex: Male
  Weight: 77 kg

DRUGS (7)
  1. DIGOXIN. [Suspect]
     Active Substance: DIGOXIN
     Indication: PRODUCT USED FOR UNKNOWN INDICATION
     Route: 048
     Dates: start: 20170101
  2. FUROSEMIDE. [Concomitant]
     Active Substance: FUROSEMIDE
  3. RANOLAZINE. [Concomitant]
     Active Substance: RANOLAZINE
  4. NAPROXEN. [Concomitant]
     Active Substance: NAPROXEN
  5. OMEPRAZOLE. [Concomitant]
     Active Substance: OMEPRAZOLE
  6. ATORVASTATIN [Concomitant]
     Active Substance: ATORVASTATIN
  7. BACTRIM [Concomitant]
     Active Substance: SULFAMETHOXAZOLE\TRIMETHOPRIM

REACTIONS (6)
  - Toxicity to various agents [None]
  - Blood magnesium decreased [None]
  - Asthenia [None]
  - Dizziness [None]
  - Dyspnoea exertional [None]
  - Heart rate decreased [None]

NARRATIVE: CASE EVENT DATE: 20170928
